FAERS Safety Report 5221827-2 (Version None)
Quarter: 2007Q1

REPORT INFORMATION
  Report Type: 
  Country: None (occurrence: None)
  Receive Date: 20070129
  Receipt Date: 20070125
  Transmission Date: 20070707
  Serious: Yes (Death)
  Sender: FDA-Public Use
  Company Number: ZA-ELI_LILLY_AND_COMPANY-ZA200612001880

PATIENT
  Age: 44 Year
  Sex: Female

DRUGS (9)
  1. ZYPREXA [Suspect]
     Indication: HALLUCINATION
     Dosage: 10 MG, DAILY (1/D)
     Route: 030
     Dates: start: 20061209, end: 20061209
  2. SOLU-CORTEF [Concomitant]
     Indication: INFECTION
     Dosage: UNK, UNK
     Dates: start: 20061201
  3. DIGOXIN [Concomitant]
     Indication: CARDIAC DISORDER
     Dosage: UNK, UNK
     Route: 048
  4. ISOPTIN                                 /GFR/ [Concomitant]
     Indication: CARDIAC DISORDER
     Dosage: UNK, UNK
     Route: 048
  5. GLUCOPHAGE [Concomitant]
     Indication: DIABETES MELLITUS
     Dosage: UNK, UNK
     Route: 048
     Dates: start: 20040401
  6. GLICLAZIDE [Concomitant]
     Indication: DIABETES MELLITUS
     Dosage: UNK, UNK
     Route: 048
     Dates: start: 20040401
  7. ELTROXIN [Concomitant]
     Indication: HYPOTHYROIDISM
     Dosage: UNK, UNK
     Route: 048
  8. ALZAM [Concomitant]
     Indication: ANXIETY
     Dosage: 0.25 MG, 3/D
     Route: 048
  9. CLONAZEPAM [Concomitant]

REACTIONS (3)
  - AGITATION [None]
  - HEPATIC FAILURE [None]
  - RENAL FAILURE [None]
